FAERS Safety Report 25188190 (Version 1)
Quarter: 2025Q2

REPORT INFORMATION
  Report Type: Spontaneous
  Country: AU (occurrence: AU)
  Receive Date: 20250411
  Receipt Date: 20250411
  Transmission Date: 20250716
  Serious: Yes (Other)
  Sender: TAKEDA
  Company Number: AU-TAKEDA-2025TUS034602

PATIENT
  Age: 40 Year
  Sex: Female

DRUGS (1)
  1. VYVANSE [Suspect]
     Active Substance: LISDEXAMFETAMINE DIMESYLATE
     Indication: Product used for unknown indication

REACTIONS (5)
  - Anxiety [Unknown]
  - Condition aggravated [Unknown]
  - Depression [Unknown]
  - Drug ineffective [Not Recovered/Not Resolved]
  - Product label issue [Unknown]
